FAERS Safety Report 6255527-7 (Version None)
Quarter: 2009Q2

REPORT INFORMATION
  Report Type: 
  Country: None (occurrence: None)
  Receive Date: 20090630
  Receipt Date: 20090623
  Transmission Date: 20091009
  Serious: Yes (Other)
  Sender: FDA-Public Use
  Company Number: 2009JP003443

PATIENT
  Age: 82 Year
  Sex: Female
  Weight: 40.5 kg

DRUGS (8)
  1. VESICARE [Suspect]
     Indication: HYPERTONIC BLADDER
     Dosage: 5 MG, UID/QD, ORAL
     Route: 048
     Dates: start: 20070302
  2. BLOPRESS (CANDESARTAN CILEXETIL) PER ORAL NOS [Concomitant]
  3. BAYASPIRIN PER ORAL NOS [Concomitant]
  4. LANIRAPID (METILDIGOXIN) PER ORAL NOS [Concomitant]
  5. NITOROL (ISOSORBIDE DINITRATE) PER ORAL NOS [Concomitant]
  6. GASTER (FAMOTIDINE) ORODISPERSIBLE CR TABLET, UNKNOWN [Concomitant]
  7. GASMOTIN (MOSAPRIDE CITRATE) PER ORAL NOS [Concomitant]
  8. ARICEPT (DONEPEZIL HYDROCHLORIDE) ORODISPERSIBLE CR TABLET [Concomitant]

REACTIONS (2)
  - CARDIAC FAILURE CONGESTIVE [None]
  - WEIGHT INCREASED [None]
